FAERS Safety Report 7904728-8 (Version None)
Quarter: 2011Q4

REPORT INFORMATION
  Report Type: 
  Country: None (occurrence: None)
  Receive Date: 20111109
  Receipt Date: 20111028
  Transmission Date: 20120403
  Serious: Yes (Hospitalization)
  Sender: FDA-Public Use
  Company Number: DE-ELI_LILLY_AND_COMPANY-DE201110007866

PATIENT
  Sex: Male
  Weight: 87.5 kg

DRUGS (10)
  1. TARGIN [Concomitant]
     Indication: BACK PAIN
     Dosage: UNK
     Dates: start: 20110628
  2. VOLTAREN [Concomitant]
     Indication: BACK PAIN
     Dosage: UNK
     Route: 048
     Dates: start: 20110513
  3. GEMCITABINE HYDROCHLORIDE [Suspect]
     Indication: NON-SMALL CELL LUNG CANCER STAGE IV
     Dosage: 2675 MG, EVERY 21 DAYS/CYCLE
     Route: 042
     Dates: start: 20110510
  4. ALLOPURINOL [Concomitant]
     Indication: BLOOD URIC ACID INCREASED
     Dosage: UNK
     Dates: start: 20110511
  5. PROCHLORPERAZINE [Concomitant]
     Indication: PAIN
     Dosage: UNK
  6. OXYCODONE HYDROCHLORIDE [Concomitant]
     Indication: BACK PAIN
     Dosage: UNK
     Dates: start: 20110629
  7. TEPILTA [Concomitant]
     Indication: DYSPHAGIA
     Dosage: UNK
     Dates: start: 20110722, end: 20110804
  8. CISPLATIN [Suspect]
     Indication: NON-SMALL CELL LUNG CANCER STAGE IV
     Dosage: 158 MG, EVERY 21 DAYS/CYCLE
     Route: 042
     Dates: start: 20110510
  9. IBUPROFEN TABLETS [Concomitant]
     Indication: BACK PAIN
     Dosage: UNK UNK, PRN
  10. PANTOPRAZOLE SODIUM [Concomitant]
     Indication: ULCER
     Dosage: UNK, PRN

REACTIONS (2)
  - RENAL FAILURE [None]
  - ANAEMIA [None]
